FAERS Safety Report 12934229 (Version 2)
Quarter: 2018Q1

REPORT INFORMATION
  Report Type: Report from Study
  Country: None (occurrence: BR)
  Receive Date: 20161111
  Receipt Date: 20180125
  Transmission Date: 20180508
  Serious: Yes (Other)
  Sender: FDA-Public Use
  Company Number: BR-ABBVIE-16P-020-1775866-00

PATIENT
  Age: 52 Year
  Sex: Female
  Weight: 83 kg

DRUGS (7)
  1. HUMIRA [Suspect]
     Active Substance: ADALIMUMAB
     Route: 058
     Dates: end: 20171225
  2. METHOTREXATE. [Concomitant]
     Active Substance: METHOTREXATE
     Indication: RHEUMATIC DISORDER
     Route: 048
     Dates: start: 2015
  3. HUMIRA [Suspect]
     Active Substance: ADALIMUMAB
     Indication: RHEUMATOID ARTHRITIS
     Route: 058
     Dates: start: 20151101, end: 20161009
  4. CELERGIN [Concomitant]
     Indication: DOCUMENTED HYPERSENSITIVITY TO ADMINISTERED PRODUCT
     Route: 048
     Dates: start: 2012
  5. CYMBI [Concomitant]
     Indication: PAIN
     Route: 048
     Dates: start: 2012
  6. OMEPRAZOLE. [Concomitant]
     Active Substance: OMEPRAZOLE
     Indication: GASTRIC DISORDER
     Route: 048
     Dates: start: 2012
  7. CYCLOBENZAPRINE HYDROCHLORIDE. [Concomitant]
     Active Substance: CYCLOBENZAPRINE HYDROCHLORIDE
     Indication: PAIN
     Route: 048
     Dates: start: 2012

REACTIONS (16)
  - Intestinal haemorrhage [Recovered/Resolved]
  - Malaise [Recovering/Resolving]
  - Nephrolithiasis [Unknown]
  - Renal disorder [Not Recovered/Not Resolved]
  - Urine abnormality [Not Recovered/Not Resolved]
  - Dysstasia [Recovering/Resolving]
  - Urinary tract infection [Recovered/Resolved]
  - Documented hypersensitivity to administered product [Recovered/Resolved]
  - Kidney infection [Recovered/Resolved]
  - Dyschezia [Recovered/Resolved]
  - Kidney infection [Recovered/Resolved]
  - Nephrolithiasis [Recovered/Resolved]
  - Gastrointestinal pain [Recovered/Resolved]
  - Bacterial test positive [Not Recovered/Not Resolved]
  - Swelling [Not Recovered/Not Resolved]
  - Pyrexia [Not Recovered/Not Resolved]

NARRATIVE: CASE EVENT DATE: 20161015
